FAERS Safety Report 9251595 (Version 1)
Quarter: 2013Q1

REPORT INFORMATION
  Report Type: Spontaneous
  Country: US (occurrence: None)
  Receive Date: 20130305
  Receipt Date: 20130305
  Transmission Date: 20140127
  Serious: Yes (Hospitalization)
  Sender: FDA-Public Use
  Company Number: 163-21880-12040783

PATIENT
  Age: 74 Year
  Sex: Male

DRUGS (16)
  1. REVLIMID [Suspect]
     Indication: PLASMA CELL MYELOMA
     Dosage: 10MG, 1 IN 1 D, PO
     Route: 048
     Dates: start: 201201
  2. LORTAB (VICODIN) [Concomitant]
  3. ASPIRIN (ACETYLSALICYLIC ACID) [Concomitant]
  4. COREG (CARVEDILOL) [Concomitant]
  5. DEXAMETHASONE (DEXAMETHASONE) [Concomitant]
  6. DIAVAN (DIAVAN) [Concomitant]
  7. FENOFIBRATE (FENOFIBRATE) (FENOFIBRATE) [Concomitant]
  8. MEXILETINE (MEXILETINE) [Concomitant]
  9. VITAMINS [Concomitant]
  10. RAPAFLO (SILODOSIN) [Concomitant]
  11. SAW PALMETTO (SERENOA REPENS) [Concomitant]
  12. VYTORIN (INEGY) [Concomitant]
  13. PEPCID (FAMOTIDINE) [Concomitant]
  14. DECADRON (DEXAMETHASONE) [Concomitant]
  15. MEXITIL (MEXILETINE HYDROCHLODIRDE) [Concomitant]
  16. TRICOR (FENOFIBRATE) [Concomitant]

REACTIONS (5)
  - Chest pain [None]
  - Orthostatic hypotension [None]
  - Syncope [None]
  - Dizziness [None]
  - Renal failure acute [None]
